FAERS Safety Report 4777629-4 (Version None)
Quarter: 2005Q3

REPORT INFORMATION
  Report Type: 
  Country: None (occurrence: None)
  Receive Date: 20050921
  Receipt Date: 20050907
  Transmission Date: 20060218
  Serious: Yes (Life-Threatening, Hospitalization, Other)
  Sender: FDA-Public Use
  Company Number: USA0509107440

PATIENT
  Age: 53 Year
  Sex: Female
  Weight: 55 kg

DRUGS (5)
  1. CYMBALTA [Suspect]
     Indication: DEPRESSION
     Dates: end: 20041117
  2. XANAX [Concomitant]
  3. OGEN [Concomitant]
  4. KLONOPIN [Concomitant]
  5. IMIPRAMINE [Concomitant]

REACTIONS (3)
  - LOSS OF CONSCIOUSNESS [None]
  - MULTIPLE DRUG OVERDOSE [None]
  - SUICIDE ATTEMPT [None]
